FAERS Safety Report 4747817-1 (Version None)
Quarter: 2005Q3

REPORT INFORMATION
  Report Type: 
  Country: None (occurrence: None)
  Receive Date: 20050818
  Receipt Date: 20050810
  Transmission Date: 20060218
  Serious: Yes (Life-Threatening)
  Sender: FDA-Public Use
  Company Number: GB-JNJFOC-20050802718

PATIENT
  Sex: Female
  Weight: 52 kg

DRUGS (5)
  1. REMICADE [Suspect]
     Route: 042
  2. METHOTREXATE [Concomitant]
     Route: 065
  3. FOLIC ACID [Concomitant]
     Route: 065
  4. FROBEN [Concomitant]
     Route: 065
  5. BENDROFLURAZIDE [Concomitant]
     Route: 065

REACTIONS (2)
  - DIVERTICULUM [None]
  - LARGE INTESTINE PERFORATION [None]
